FAERS Safety Report 7465926-3 (Version None)
Quarter: 2011Q2

REPORT INFORMATION
  Report Type: 
  Country: None (occurrence: None)
  Receive Date: 20110509
  Receipt Date: 20100506
  Transmission Date: 20111010
  Serious: No
  Sender: FDA-Public Use
  Company Number: US-ALEXION-A201000524

PATIENT
  Sex: Female

DRUGS (6)
  1. SOLIRIS [Suspect]
     Indication: PAROXYSMAL NOCTURNAL HAEMOGLOBINURIA
     Dosage: 600 MG, QW
     Route: 042
     Dates: start: 20100506
  2. FOLIC ACID [Concomitant]
     Indication: PAROXYSMAL NOCTURNAL HAEMOGLOBINURIA
     Dosage: 1 MG, QD
     Route: 048
  3. CALTRATE                           /00108001/ [Concomitant]
     Dosage: UNK, QD
     Route: 048
  4. TYLENOL (CAPLET) [Concomitant]
     Indication: PREMEDICATION
     Dosage: 650 MG, SINGLE
     Route: 048
     Dates: start: 20100506, end: 20100506
  5. ASPIRIN [Concomitant]
     Dosage: 81 MG, QD
     Route: 048
  6. BENADRYL [Concomitant]
     Indication: PREMEDICATION
     Dosage: 25 MG, SINGLE
     Route: 048
     Dates: start: 20100506, end: 20100506

REACTIONS (4)
  - AFFECT LABILITY [None]
  - HEADACHE [None]
  - ASTHENIA [None]
  - HYPOAESTHESIA ORAL [None]
